FAERS Safety Report 5520588-7 (Version None)
Quarter: 2007Q4

REPORT INFORMATION
  Report Type: 
  Country: None (occurrence: None)
  Receive Date: 20071119
  Receipt Date: 20071114
  Transmission Date: 20080405
  Serious: Yes (Hospitalization)
  Sender: FDA-Public Use
  Company Number: JP-SP-2007-03888

PATIENT
  Age: 70 Year
  Sex: Male

DRUGS (5)
  1. IMMUCYST [Suspect]
     Indication: BLADDER CANCER
     Route: 043
     Dates: start: 20070301
  2. METHOTREXATE [Concomitant]
     Dates: start: 20070501, end: 20070601
  3. VINBLASTINE SULFATE [Concomitant]
     Dates: start: 20070501, end: 20070601
  4. DOXORUBICIN HYDROCHLORIDE [Concomitant]
     Dates: start: 20070501, end: 20070601
  5. CISPLATIN [Concomitant]
     Dates: start: 20070501, end: 20070601

REACTIONS (1)
  - INFECTIVE SPONDYLITIS [None]
